FAERS Safety Report 6702464-7 (Version None)
Quarter: 2010Q2

REPORT INFORMATION
  Report Type: 
  Country: None (occurrence: None)
  Receive Date: 20100429
  Receipt Date: 20100419
  Transmission Date: 20101027
  Serious: Yes (Hospitalization)
  Sender: FDA-Public Use
  Company Number: B0648277A

PATIENT
  Sex: Female

DRUGS (11)
  1. COMBIVIR [Suspect]
     Indication: ANTIVIRAL PROPHYLAXIS
     Dosage: 1TAB TWICE PER DAY
     Route: 048
     Dates: start: 20100217, end: 20100321
  2. PARACETAMOL + CODEIN [Suspect]
     Indication: ABDOMINAL PAIN
     Route: 048
     Dates: start: 20100319, end: 20100321
  3. KALETRA [Suspect]
     Indication: ANTIVIRAL PROPHYLAXIS
     Dosage: 2TAB TWICE PER DAY
     Route: 048
     Dates: start: 20100217, end: 20100321
  4. BACLOFENE [Suspect]
     Route: 065
     Dates: start: 20100219, end: 20100321
  5. FLUANXOL [Suspect]
     Dosage: 120MG SINGLE DOSE
     Route: 030
     Dates: start: 20100308, end: 20100308
  6. NOCTAMIDE [Concomitant]
     Dosage: 2MG PER DAY
     Route: 048
     Dates: start: 20091001
  7. ZOPICLONE [Concomitant]
     Dosage: 7.5MG PER DAY
     Route: 048
     Dates: start: 20090701
  8. FLUOXETINE [Concomitant]
     Dosage: 20MG PER DAY
     Route: 048
     Dates: start: 20090801
  9. AKINETON [Concomitant]
     Dosage: 4MG PER DAY
     Route: 048
     Dates: start: 20100317
  10. EDUCTYL [Concomitant]
  11. THERALENE [Concomitant]
     Route: 065
     Dates: start: 20100219, end: 20100317

REACTIONS (6)
  - ABDOMINAL PAIN UPPER [None]
  - DRUG INTERACTION [None]
  - HAEMATEMESIS [None]
  - HEPATIC ENCEPHALOPATHY [None]
  - HEPATITIS FULMINANT [None]
  - RENAL FAILURE ACUTE [None]
